FAERS Safety Report 5679964-4 (Version None)
Quarter: 2008Q1

REPORT INFORMATION
  Report Type: 
  Country: None (occurrence: None)
  Receive Date: 20080326
  Receipt Date: 20080318
  Transmission Date: 20080703
  Serious: Yes (Other)
  Sender: FDA-Public Use
  Company Number: GB-RB-000535-08

PATIENT
  Age: 24 Year
  Sex: Female

DRUGS (4)
  1. SUBUTEX [Suspect]
     Route: 048
  2. INTERFERON ALFA-2B W/RIBAVIRIN [Suspect]
     Indication: HEPATITIS C
     Dosage: DOSAGE UNKNOWN
     Route: 065
  3. FLUOXETINE [Concomitant]
     Indication: DEPRESSION
     Dosage: DOSAGE UNKNOWN
     Route: 065
     Dates: start: 20061001, end: 20071001
  4. HEROIN [Concomitant]
     Indication: DRUG USE FOR UNKNOWN INDICATION
     Dosage: DOSAGE UNKNOWN
     Route: 065

REACTIONS (4)
  - ABORTION SPONTANEOUS [None]
  - DRUG EXPOSURE DURING PREGNANCY [None]
  - INCORRECT ROUTE OF DRUG ADMINISTRATION [None]
  - TRANSMISSION OF DRUG VIA SEMEN [None]
